FAERS Safety Report 4293933-0 (Version None)
Quarter: 2004Q1

REPORT INFORMATION
  Report Type: 
  Country: None (occurrence: None)
  Receive Date: 20040210
  Receipt Date: 20040123
  Transmission Date: 20041129
  Serious: Yes (Hospitalization)
  Sender: FDA-Public Use
  Company Number: 7341

PATIENT
  Age: 69 Year
  Sex: Female

DRUGS (8)
  1. LEUCOVORIN CALCIUM [Suspect]
     Dosage: IV
     Route: 042
     Dates: start: 20031126, end: 20031126
  2. LEUCOVORIN CALCIUM [Suspect]
     Dosage: IV
     Route: 042
     Dates: start: 20031203, end: 20031203
  3. FLUOROURACIL [Suspect]
     Dosage: IV
     Route: 042
     Dates: start: 20031128, end: 20031128
  4. FLUOROURACIL [Suspect]
     Dosage: IV
     Route: 042
     Dates: start: 20031203, end: 20031203
  5. OXALIPLATIN [Suspect]
     Dosage: IV
     Route: 042
     Dates: start: 20031126, end: 20031126
  6. OXALIPLATIN [Suspect]
     Dosage: IV
     Route: 042
     Dates: start: 20031203, end: 20031203
  7. PLACEBO [Concomitant]
  8. PTK787/2K 222584 [Concomitant]

REACTIONS (1)
  - HERPES ZOSTER [None]
